FAERS Safety Report 14514579 (Version 1)
Quarter: 2018Q1

REPORT INFORMATION
  Report Type: Spontaneous
  Country: US (occurrence: US)
  Receive Date: 20180209
  Receipt Date: 20180209
  Transmission Date: 20180509
  Serious: Yes (Hospitalization)
  Sender: FDA-Public Use
  Company Number: US-THE RITEDOSE CORPORATION-2017RIT000194

PATIENT

DRUGS (1)
  1. ALBUTEROL SULFATE INHALATION SOLUTION [Suspect]
     Active Substance: ALBUTEROL SULFATE
     Indication: ASTHMA
     Route: 055

REACTIONS (7)
  - Headache [Unknown]
  - Hyperventilation [Unknown]
  - Palpitations [Unknown]
  - Migraine [Unknown]
  - Vomiting [Unknown]
  - Feeling jittery [Unknown]
  - Chest discomfort [Unknown]
